FAERS Safety Report 7448506-5 (Version None)
Quarter: 2011Q2

REPORT INFORMATION
  Report Type: 
  Country: None (occurrence: None)
  Receive Date: 20110429
  Receipt Date: 20100611
  Transmission Date: 20111010
  Serious: No
  Sender: FDA-Public Use
  Company Number: US-ASTRAZENECA-2010SE27442

PATIENT
  Age: 20955 Day
  Sex: Female

DRUGS (4)
  1. NEXIUM [Suspect]
     Dosage: 1 CAPSULE DAILY
     Route: 048
  2. NEXIUM [Suspect]
     Indication: DYSPEPSIA
     Dosage: 2 CAPSULES FIRST DAY
     Route: 048
     Dates: start: 20100607, end: 20100607
  3. NEXIUM [Suspect]
     Indication: GASTRITIS
     Dosage: 2 CAPSULES FIRST DAY
     Route: 048
     Dates: start: 20100607, end: 20100607
  4. NEXIUM [Suspect]
     Dosage: 1 CAPSULE DAILY
     Route: 048

REACTIONS (2)
  - CRYING [None]
  - DEPRESSION [None]
